FAERS Safety Report 6795219-9 (Version None)
Quarter: 2010Q2

REPORT INFORMATION
  Report Type: 
  Country: None (occurrence: None)
  Receive Date: 20100625
  Receipt Date: 20100615
  Transmission Date: 20101027
  Serious: Yes (Other)
  Sender: FDA-Public Use
  Company Number: PL-ROCHE-711100

PATIENT
  Age: 59 Year
  Sex: Female

DRUGS (6)
  1. AVASTIN [Suspect]
     Indication: DRUG USE FOR UNKNOWN INDICATION
     Route: 065
     Dates: start: 20090301
  2. PACLITAXEL [Concomitant]
  3. CISPLATIN [Concomitant]
  4. GEMCITABINE HCL [Concomitant]
  5. GEMCITABINE HCL [Concomitant]
  6. VINORELBINE [Concomitant]

REACTIONS (1)
  - DISEASE PROGRESSION [None]
